FAERS Safety Report 9837895 (Version 3)
Quarter: 2014Q4

REPORT INFORMATION
  Report Type: Spontaneous
  Country: US (occurrence: None)
  Receive Date: 20131205
  Receipt Date: 20141010
  Transmission Date: 20150529
  Serious: No
  Sender: FDA-Public Use
  Company Number: 163-POMAL-13104156

PATIENT
  Age: 81 Year
  Sex: Female
  Weight: 137 kg

DRUGS (8)
  1. TRAMADOL (TRAMADOL) [Concomitant]
     Active Substance: TRAMADOL
  2. LYRICA [Concomitant]
     Active Substance: PREGABALIN
  3. NEXIUM [Concomitant]
     Active Substance: ESOMEPRAZOLE MAGNESIUM
  4. FENOFIBRIC ACID (FENOFIBRIC ACID) [Concomitant]
  5. ZANTAC [Concomitant]
     Active Substance: RANITIDINE HYDROCHLORIDE
  6. ESCITALOPRAM [Concomitant]
     Active Substance: ESCITALOPRAM OXALATE
  7. POMALYST [Suspect]
     Active Substance: POMALIDOMIDE
     Indication: PLASMA CELL MYELOMA
     Dosage: 2 MG, 21 IN 21 D, PO
     Route: 048
     Dates: start: 20130905
  8. SYNTHROID [Concomitant]
     Active Substance: LEVOTHYROXINE SODIUM

REACTIONS (14)
  - Weight fluctuation [None]
  - Night sweats [None]
  - Hypoaesthesia [None]
  - Blister [None]
  - Tremor [None]
  - Chills [None]
  - Asthenia [None]
  - Nervousness [None]
  - Dysuria [None]
  - Peripheral swelling [None]
  - Hyperhidrosis [None]
  - Fatigue [None]
  - Constipation [None]
  - Urinary tract infection [None]

NARRATIVE: CASE EVENT DATE: 2013
